FAERS Safety Report 7434698-0 (Version None)
Quarter: 2011Q2

REPORT INFORMATION
  Report Type: 
  Country: None (occurrence: None)
  Receive Date: 20110425
  Receipt Date: 20110412
  Transmission Date: 20111010
  Serious: Yes (Death, Hospitalization)
  Sender: FDA-Public Use
  Company Number: JP-BAYER-201012890BYL

PATIENT
  Age: 75 Year
  Sex: Male
  Weight: 61.9 kg

DRUGS (16)
  1. SUTENT [Suspect]
     Indication: PRODUCT USED FOR UNKNOWN INDICATION
     Dosage: 50 MG (DAILY DOSE), , ORAL
     Route: 048
     Dates: start: 20090807, end: 20090821
  2. SUTENT [Suspect]
     Dosage: 37.5 MG (DAILY DOSE), , ORAL
     Route: 048
     Dates: start: 20090918, end: 20090929
  3. NOVAMIN [Concomitant]
     Indication: PROPHYLAXIS
     Dosage: 15 MG (DAILY DOSE), , ORAL
     Route: 048
  4. RED CELLS MAP [Concomitant]
     Dosage: 2 UNITS
     Route: 042
     Dates: start: 20100109, end: 20100109
  5. NEXAVAR [Suspect]
     Indication: RENAL CELL CARCINOMA
     Dosage: 400 MG (DAILY DOSE), , ORAL
     Route: 048
     Dates: start: 20091109, end: 20091203
  6. NEXAVAR [Suspect]
     Dosage: 400 MG (DAILY DOSE), , ORAL
     Route: 048
     Dates: start: 20091218, end: 20100126
  7. TAKEPRON [Concomitant]
     Indication: ABDOMINAL DISCOMFORT
     Dosage: 15 MG (DAILY DOSE), , ORAL
     Route: 048
  8. SUTENT [Suspect]
     Dosage: 37.5 MG (DAILY DOSE), , ORAL
     Route: 048
     Dates: start: 20090822, end: 20090831
  9. LENDORMIN [Concomitant]
     Indication: INSOMNIA
     Dosage: 0.25 MG (DAILY DOSE), , ORAL
     Route: 048
  10. ETODOLAC [Concomitant]
     Indication: PAIN MANAGEMENT
     Dosage: 800 MG (DAILY DOSE), , ORAL
     Route: 048
  11. P GUARD [Concomitant]
     Indication: PAIN MANAGEMENT
     Dosage: 120 MG (DAILY DOSE), , ORAL
     Route: 048
     Dates: start: 20091113
  12. MAGMITT [Concomitant]
     Indication: CONSTIPATION
     Dosage: 990 MG (DAILY DOSE), , ORAL
     Route: 048
  13. FERO-GRADUMET [Concomitant]
     Indication: ANAEMIA
     Dosage: 105 MG (DAILY DOSE), , ORAL
     Route: 048
  14. SUTENT [Suspect]
     Dosage: 25 MG (DAILY DOSE), , ORAL
     Route: 048
     Dates: start: 20090930, end: 20091013
  15. MUCOSTA [Concomitant]
     Indication: ABDOMINAL DISCOMFORT
     Dosage: 300 MG (DAILY DOSE), , ORAL
     Route: 048
  16. AMLODIN [Concomitant]
     Indication: BLOOD PRESSURE MANAGEMENT
     Dosage: 5 MG (DAILY DOSE), , ORAL
     Route: 048

REACTIONS (3)
  - RENAL CELL CARCINOMA [None]
  - SPLENIC INFARCTION [None]
  - ABDOMINAL PAIN [None]
